FAERS Safety Report 5653834-X (Version None)
Quarter: 2008Q1

REPORT INFORMATION
  Report Type: 
  Country: None (occurrence: None)
  Receive Date: 20080306
  Receipt Date: 20080226
  Transmission Date: 20080703
  Serious: Yes (Death, Life-Threatening, Hospitalization)
  Sender: FDA-Public Use
  Company Number: BEWYE890111SEP06

PATIENT
  Age: 65 Year
  Sex: Female
  Weight: 100 kg

DRUGS (12)
  1. TYGACIL [Suspect]
     Indication: OSTEOMYELITIS
     Route: 042
     Dates: start: 20060811, end: 20060906
  2. TYGACIL [Suspect]
     Indication: DIABETIC FOOT
  3. ATORVASTATIN CALCIUM [Concomitant]
     Indication: HYPERCHOLESTEROLAEMIA
     Route: 048
  4. ALLOPURINOL [Concomitant]
     Route: 048
  5. ALPRAZOLAM [Concomitant]
     Route: 048
  6. POTASSIUM CHLORIDE/SODIUM CHLORIDE [Concomitant]
     Dosage: 60 MG EVERY
     Route: 042
     Dates: start: 20060831
  7. FLUOXETINE HYDROCHLORIDE [Concomitant]
     Route: 048
  8. ACETAMINOPHEN [Concomitant]
     Dosage: 1 G IF NECESSARY
     Route: 048
     Dates: start: 20060808
  9. ZOLPIDEM [Concomitant]
     Route: 048
  10. METOCLOPRAMIDE [Concomitant]
     Dosage: 10 MG EVERY
     Route: 042
     Dates: start: 20060902, end: 20060906
  11. FUROSEMIDE SODIUM [Concomitant]
     Route: 048
     Dates: start: 20060901
  12. OMEPRAZOLE [Concomitant]
     Route: 048
     Dates: start: 20060901

REACTIONS (4)
  - HEPATIC FAILURE [None]
  - SEPTIC SHOCK [None]
  - SHOCK HAEMORRHAGIC [None]
  - THROMBOCYTOPENIA [None]
